FAERS Safety Report 6910580-X (Version None)
Quarter: 2010Q3

REPORT INFORMATION
  Report Type: 
  Country: None (occurrence: None)
  Receive Date: 20100806
  Receipt Date: 20100728
  Transmission Date: 20110219
  Serious: Yes (Death)
  Sender: FDA-Public Use
  Company Number: US-PFIZER INC-2010095465

PATIENT
  Sex: Female

DRUGS (1)
  1. SUTENT [Suspect]
     Indication: MALIGNANT URINARY TRACT NEOPLASM
     Dosage: 50 MG, 1X/DAY, 28 DAYS ON AND 14 DAYS OFF

REACTIONS (1)
  - DEATH [None]
